FAERS Safety Report 20561546 (Version 4)
Quarter: 2022Q1

REPORT INFORMATION
  Report Type: Spontaneous
  Country: CN (occurrence: CN)
  Receive Date: 20220307
  Receipt Date: 20220325
  Transmission Date: 20220424
  Serious: Yes (Other)
  Sender: FDA-Public Use
  Company Number: CN-BAYER-2022A028998

PATIENT
  Age: 39 Year
  Sex: Female

DRUGS (5)
  1. YAZ [Suspect]
     Active Substance: DROSPIRENONE\ETHINYL ESTRADIOL
     Indication: Heavy menstrual bleeding
     Dosage: UNK
     Route: 048
     Dates: start: 202201, end: 20220321
  2. YAZ [Suspect]
     Active Substance: DROSPIRENONE\ETHINYL ESTRADIOL
     Indication: Menstrual cycle management
  3. COVID-19 VACCINE [Concomitant]
     Dosage: UNK
  4. OMEPRAZOLE [Concomitant]
     Active Substance: OMEPRAZOLE
     Indication: Antacid therapy
     Route: 048
  5. VOCINTI [Concomitant]
     Dosage: UNK
     Route: 048
     Dates: start: 2022

REACTIONS (30)
  - Corneal bleeding [None]
  - Intraocular pressure increased [Not Recovered/Not Resolved]
  - Headache [Not Recovered/Not Resolved]
  - Breast swelling [Recovering/Resolving]
  - Diarrhoea [None]
  - Dizziness [None]
  - Lethargy [None]
  - Abdominal pain [None]
  - Hypoaesthesia [None]
  - Asthenia [None]
  - Muscular weakness [None]
  - Dysstasia [None]
  - Pain [None]
  - Eye swelling [Not Recovered/Not Resolved]
  - Abdominal pain upper [None]
  - Hypoaesthesia [None]
  - Back pain [None]
  - Breast pain [Recovering/Resolving]
  - Insomnia [Not Recovered/Not Resolved]
  - Poor quality sleep [None]
  - Dyspnoea [None]
  - Premenstrual syndrome [None]
  - Nausea [None]
  - Abdominal discomfort [None]
  - Eye disorder [None]
  - Anxiety [Not Recovered/Not Resolved]
  - Mucous stools [None]
  - Abdominal pain upper [None]
  - Product use in unapproved indication [None]
  - Wrong technique in product usage process [None]

NARRATIVE: CASE EVENT DATE: 20220101
